FAERS Safety Report 21821155 (Version 1)
Quarter: 2023Q1

REPORT INFORMATION
  Report Type: Spontaneous
  Country: US (occurrence: US)
  Receive Date: 20230105
  Receipt Date: 20230105
  Transmission Date: 20230417
  Serious: No
  Sender: FDA-Public Use
  Company Number: US-ChurchDwight-2022-CDW-01964

PATIENT

DRUGS (2)
  1. EUCALYPTOL\MENTHOL [Suspect]
     Active Substance: EUCALYPTOL\MENTHOL
     Indication: Upper respiratory tract congestion
     Route: 045
  2. EUCALYPTOL\MENTHOL [Suspect]
     Active Substance: EUCALYPTOL\MENTHOL
     Indication: Influenza

REACTIONS (4)
  - Anosmia [Unknown]
  - Ageusia [Unknown]
  - Nasal congestion [Unknown]
  - Nasal discomfort [Unknown]
